FAERS Safety Report 8088855-3 (Version None)
Quarter: 2012Q1

REPORT INFORMATION
  Report Type: 
  Country: None (occurrence: None)
  Receive Date: 20120128
  Receipt Date: 20110406
  Transmission Date: 20120608
  Serious: No
  Sender: FDA-Public Use
  Company Number: US-ABBOTT-11P-163-0717275-00

PATIENT
  Sex: Female

DRUGS (6)
  1. UNKNOWN STEROID CREAM [Suspect]
     Indication: ERYTHEMA MULTIFORME
     Route: 061
     Dates: start: 20100801
  2. HUMIRA [Suspect]
     Indication: RHEUMATOID ARTHRITIS
     Dates: start: 20071001
  3. FOLIC ACID [Concomitant]
     Indication: PRODUCT USED FOR UNKNOWN INDICATION
  4. ARAVA [Suspect]
     Indication: RHEUMATOID ARTHRITIS
     Dates: start: 20080201
  5. UNKNOWN STEROID CREAM [Suspect]
     Indication: COXSACKIE VIRAL INFECTION
  6. CELEBREX [Concomitant]
     Indication: RHEUMATOID ARTHRITIS

REACTIONS (8)
  - ERYTHEMA MULTIFORME [None]
  - SKIN ATROPHY [None]
  - BLISTER [None]
  - ALOPECIA [None]
  - PSORIASIS [None]
  - RASH GENERALISED [None]
  - OEDEMA PERIPHERAL [None]
  - COXSACKIE VIRAL INFECTION [None]
